FAERS Safety Report 20694877 (Version 2)
Quarter: 2023Q2

REPORT INFORMATION
  Report Type: Spontaneous
  Country: NO (occurrence: NO)
  Receive Date: 20220411
  Receipt Date: 20230616
  Transmission Date: 20230722
  Serious: Yes (Hospitalization, Other)
  Sender: FDA-Public Use
  Company Number: NO-SUN PHARMACEUTICAL INDUSTRIES LTD-2022RR-332345

PATIENT
  Age: 69 Year
  Sex: Female

DRUGS (9)
  1. IRINOTECAN [Interacting]
     Active Substance: IRINOTECAN
     Indication: Pancreatic carcinoma metastatic
     Dosage: UNK
     Route: 065
     Dates: start: 202202, end: 202202
  2. OXALIPLATIN [Interacting]
     Active Substance: OXALIPLATIN
     Indication: Pancreatic carcinoma metastatic
     Dosage: UNK
     Route: 065
     Dates: start: 202202, end: 202202
  3. ELIQUIS [Interacting]
     Active Substance: APIXABAN
     Indication: Pulmonary embolism
     Dosage: 5 MILLIGRAM, BID
     Route: 048
     Dates: start: 20220103, end: 20220305
  4. FLUOROURACIL [Interacting]
     Active Substance: FLUOROURACIL
     Indication: Pancreatic carcinoma metastatic
     Dosage: UNK
     Route: 065
     Dates: start: 202202, end: 202202
  5. AKYNZEO (NETUPITANT\PALONOSETRON) [Interacting]
     Active Substance: NETUPITANT\PALONOSETRON
     Indication: Nausea
     Dosage: GIVEN THE FIRST DAY WITH THE CHEMOTHERAPY
     Route: 048
     Dates: start: 202202, end: 202202
  6. JARDIANCE [Concomitant]
     Active Substance: EMPAGLIFLOZIN
     Indication: Diabetes mellitus
     Dosage: 10 MILLIGRAM, DAILY
     Route: 048
     Dates: start: 2021
  7. DEXAMETHASONE [Concomitant]
     Active Substance: DEXAMETHASONE
     Indication: Nausea
     Dosage: GIVEN THE FIRST THREE DAYS OF THE CURE WITH CHEMOTHERAPY (12 MG + 8 MG + 8 MG) ()
     Route: 065
     Dates: start: 202202, end: 202202
  8. IMOVANE [Concomitant]
     Active Substance: ZOPICLONE
     Indication: Sleep disorder
     Dosage: 7.5 MILLIGRAM, DAILY, VESPER
     Route: 048
     Dates: start: 2021
  9. LEUCOVORIN CALCIUM [Concomitant]
     Active Substance: LEUCOVORIN CALCIUM
     Indication: Pancreatic carcinoma metastatic
     Dosage: UNK
     Route: 065
     Dates: start: 202202, end: 202202

REACTIONS (2)
  - Thrombocytopenia [Recovering/Resolving]
  - Drug interaction [Recovering/Resolving]

NARRATIVE: CASE EVENT DATE: 20220201
